FAERS Safety Report 7654467 (Version 4)
Quarter: 2013Q4

REPORT INFORMATION
  Report Type: Spontaneous
  Country: US (occurrence: US)
  Receive Date: 20101103
  Receipt Date: 20131114
  Transmission Date: 20140711
  Serious: Yes (Hospitalization, Other)
  Sender: FDA-Public Use
  Company Number: US-BAYER-201039174NA

PATIENT
  Age: 39 Year
  Sex: Female
  Weight: 113 kg

DRUGS (6)
  1. YAZ [Suspect]
     Indication: PRODUCT USED FOR UNKNOWN INDICATION
     Route: 048
     Dates: start: 200608
  2. PONSTIL [Concomitant]
  3. BACTRIM [Concomitant]
     Indication: URINARY TRACT INFECTION
  4. ALBUTEROL [Concomitant]
     Indication: ASTHMA
  5. GLUCOPHAGE [Concomitant]
     Indication: DIABETES MELLITUS
  6. BACTROBAN [Concomitant]

REACTIONS (4)
  - Myocardial infarction [Unknown]
  - Cardiac disorder [Unknown]
  - Asthenia [Unknown]
  - Fatigue [Unknown]
